FAERS Safety Report 5331540-9 (Version None)
Quarter: 2007Q2

REPORT INFORMATION
  Report Type: 
  Country: None (occurrence: None)
  Receive Date: 20070522
  Receipt Date: 20070509
  Transmission Date: 20071010
  Serious: Yes (Hospitalization, Other)
  Sender: FDA-Public Use
  Company Number: US-ELI_LILLY_AND_COMPANY-US200701002188

PATIENT
  Age: 47 Year
  Sex: Female

DRUGS (6)
  1. CYMBALTA [Suspect]
     Indication: DEPRESSION
     Dosage: 90 MG, DAILY (1/D)
     Dates: start: 20050315, end: 20060905
  2. OXYBUTYNIN CHLORIDE [Concomitant]
     Indication: BLADDER DISORDER
  3. PREMARIN [Concomitant]
  4. VYTORIN [Concomitant]
     Dates: end: 20060905
  5. SEROQUEL [Concomitant]
     Dosage: 100 MG, EACH EVENING
     Dates: end: 20060905
  6. LUNESTA [Concomitant]
     Dosage: 2 MG, EACH EVENING
     Dates: end: 20060905

REACTIONS (5)
  - ALANINE AMINOTRANSFERASE INCREASED [None]
  - ASPARTATE AMINOTRANSFERASE INCREASED [None]
  - BLOOD ALKALINE PHOSPHATASE INCREASED [None]
  - GAMMA-GLUTAMYLTRANSFERASE INCREASED [None]
  - JAUNDICE [None]
